FAERS Safety Report 9649031 (Version 3)
Quarter: 2015Q3

REPORT INFORMATION
  Report Type: Report from Study
  Country: AU (occurrence: AU)
  Receive Date: 20131028
  Receipt Date: 20150804
  Transmission Date: 20151125
  Serious: Yes (Hospitalization)
  Sender: FDA-Public Use
  Company Number: AU-ABBVIE-12P-008-0986704-00

PATIENT
  Age: 32 Year
  Sex: Female
  Weight: 45 kg

DRUGS (22)
  1. HUMIRA [Suspect]
     Active Substance: ADALIMUMAB
     Route: 058
     Dates: start: 20110831, end: 20121029
  2. HYDROCORTISONE. [Concomitant]
     Active Substance: HYDROCORTISONE
     Route: 042
     Dates: start: 20120809, end: 20120810
  3. PRENATAL VITAMINS [Concomitant]
     Active Substance: VITAMINS
     Indication: VITAMIN SUPPLEMENTATION
     Dates: start: 201110
  4. PREDNISOLONE. [Concomitant]
     Active Substance: PREDNISOLONE
     Indication: CROHN^S DISEASE
     Dosage: 40 MG TAPERING DOSE
     Dates: start: 20111115, end: 20120805
  5. HUMIRA [Suspect]
     Active Substance: ADALIMUMAB
     Route: 058
     Dates: start: 20130620
  6. PREDNISOLONE. [Concomitant]
     Active Substance: PREDNISOLONE
     Indication: CROHN^S DISEASE
     Dosage: 40 MG REDUCING REGIME
     Dates: start: 20120809
  7. HYDROCORTISONE. [Concomitant]
     Active Substance: HYDROCORTISONE
     Indication: CROHN^S DISEASE
     Route: 042
     Dates: start: 20111111, end: 20111114
  8. HYDROCORTISONE. [Concomitant]
     Active Substance: HYDROCORTISONE
     Route: 042
     Dates: start: 20120806, end: 20120809
  9. HUMIRA [Suspect]
     Active Substance: ADALIMUMAB
     Route: 058
     Dates: start: 20090422
  10. PREDNISOLONE. [Concomitant]
     Active Substance: PREDNISOLONE
     Dates: start: 20121112, end: 2013
  11. PANADOL [Concomitant]
     Active Substance: ACETAMINOPHEN
     Indication: PAIN
     Dosage: 4 TIMES A DAY AS NEEDED
     Dates: start: 20100429, end: 20121030
  12. HYDROCORTISONE. [Concomitant]
     Active Substance: HYDROCORTISONE
     Indication: CROHN^S DISEASE
     Route: 042
     Dates: start: 20090708, end: 20090715
  13. HUMIRA [Suspect]
     Active Substance: ADALIMUMAB
     Indication: CROHN^S DISEASE
     Route: 058
     Dates: start: 20080108
  14. METRONIDAZOLE. [Concomitant]
     Active Substance: METRONIDAZOLE
     Indication: INFECTION
     Dates: start: 20100503, end: 20100507
  15. METRONIDAZOLE. [Concomitant]
     Active Substance: METRONIDAZOLE
     Indication: GASTROINTESTINAL INFECTION
     Dates: start: 20120807, end: 20120809
  16. ERYTHROMYCIN. [Concomitant]
     Active Substance: ERYTHROMYCIN
     Indication: ANAL ABSCESS
     Dates: start: 20120411
  17. HUMIRA [Suspect]
     Active Substance: ADALIMUMAB
     Route: 058
     Dates: start: 20091216
  18. HUMIRA [Suspect]
     Active Substance: ADALIMUMAB
     Route: 058
     Dates: start: 20101112, end: 20110803
  19. NOVASONE [Concomitant]
     Active Substance: MOMETASONE FUROATE
     Indication: PSORIASIS
     Dosage: APPLY AT NIGHT TO FEET
     Dates: start: 200802
  20. PREDNISOLONE. [Concomitant]
     Active Substance: PREDNISOLONE
     Indication: CROHN^S DISEASE
     Dates: start: 20090712, end: 200909
  21. METRONIDAZOLE. [Concomitant]
     Active Substance: METRONIDAZOLE
     Indication: CLOSTRIDIUM DIFFICILE COLITIS
     Dates: start: 20090827, end: 20090903
  22. METRONIDAZOLE. [Concomitant]
     Active Substance: METRONIDAZOLE
     Indication: CLOSTRIDIUM DIFFICILE INFECTION
     Dates: start: 20121111, end: 2013

REACTIONS (1)
  - Crohn^s disease [Recovered/Resolved]

NARRATIVE: CASE EVENT DATE: 20120719
